FAERS Safety Report 8305361-9 (Version None)
Quarter: 2012Q2

REPORT INFORMATION
  Report Type: 
  Country: None (occurrence: None)
  Receive Date: 20120423
  Receipt Date: 20120410
  Transmission Date: 20120825
  Serious: Yes (Other)
  Sender: FDA-Public Use
  Company Number: US-JNJFOC-20090805739

PATIENT
  Age: 27 Year
  Sex: Female

DRUGS (3)
  1. ACETAMINOPHEN [Suspect]
     Route: 048
  2. ACETAMINOPHEN [Suspect]
     Indication: TOOTHACHE
     Dosage: 32.5 G OVER 2 DAYS, PO, 4 DAYS PRIOR TO ADMISSION
     Route: 048
  3. COCAINE [Suspect]
     Indication: ILL-DEFINED DISORDER
     Dosage: UNKNOWN DOSE, 3 DAYS PRIOR TO ADMISSION
     Route: 065

REACTIONS (5)
  - LIVER FUNCTION TEST ABNORMAL [None]
  - OVERDOSE [None]
  - BLOOD CREATININE INCREASED [None]
  - BLEEDING TIME PROLONGED [None]
  - ABNORMAL LABOUR [None]
